FAERS Safety Report 18922598 (Version 6)
Quarter: 2021Q3

REPORT INFORMATION
  Report Type: Spontaneous
  Country: DE (occurrence: DE)
  Receive Date: 20210222
  Receipt Date: 20210817
  Transmission Date: 20211014
  Serious: Yes (Death, Hospitalization, Disabling, Other)
  Sender: FDA-Public Use
  Company Number: DE-ROCHE-2770522

PATIENT
  Age: 52 Year
  Sex: Female

DRUGS (14)
  1. OCREVUS [Suspect]
     Active Substance: OCRELIZUMAB
     Dosage: THE SUBSEQUENT DOSES TAKEN ON 19/MAR/2019, 16/NOV/2019, 08/SEP/2020
     Route: 042
     Dates: start: 20181017
  2. PETHIDINE [Concomitant]
     Active Substance: MEPERIDINE
     Route: 058
  3. PREDNISOLON [Concomitant]
     Active Substance: PREDNISOLONE
     Route: 048
  4. PREGABALIN. [Concomitant]
     Active Substance: PREGABALIN
     Dosage: 150?100?200 MG
  5. BACLOFEN. [Concomitant]
     Active Substance: BACLOFEN
  6. LAMOTRIGIN [Concomitant]
     Active Substance: LAMOTRIGINE
  7. NALOXONE [Concomitant]
     Active Substance: NALOXONE
     Dosage: 100/8 MG TWICE A DAY
     Dates: end: 202102
  8. DOLANTIN [Concomitant]
     Active Substance: MEPERIDINE
     Route: 058
  9. TAZOBAC [Concomitant]
     Active Substance: PIPERACILLIN SODIUM\TAZOBACTAM SODIUM
     Dosage: 1?1?1
     Route: 042
  10. NACL [Concomitant]
     Active Substance: SODIUM CHLORIDE
     Dosage: 1?0?0
     Route: 042
  11. OCREVUS [Suspect]
     Active Substance: OCRELIZUMAB
     Indication: RELAPSING-REMITTING MULTIPLE SCLEROSIS
     Dosage: THE SUBSEQUENT DOSES TAKEN ON 10/APR/2018
     Route: 042
     Dates: start: 20180327
  12. ENOXAPARIN [Concomitant]
     Active Substance: ENOXAPARIN
  13. IPRATROPIUMBROMID [Concomitant]
     Active Substance: IPRATROPIUM BROMIDE
  14. NOVALGIN (METAMIZOLE SODIUM) [Concomitant]
     Active Substance: METAMIZOLE SODIUM

REACTIONS (10)
  - Bacterial test positive [Unknown]
  - Acute kidney injury [Fatal]
  - Hypertension [Unknown]
  - Multiple organ dysfunction syndrome [Fatal]
  - Neuralgia [Not Recovered/Not Resolved]
  - Insomnia [Unknown]
  - Immunoglobulins decreased [Unknown]
  - Hantaviral infection [Unknown]
  - Gram stain positive [Unknown]
  - COVID-19 pneumonia [Fatal]

NARRATIVE: CASE EVENT DATE: 20210128
